FAERS Safety Report 20159358 (Version 4)
Quarter: 2022Q1

REPORT INFORMATION
  Report Type: Spontaneous
  Country: BR (occurrence: BR)
  Receive Date: 20211208
  Receipt Date: 20220222
  Transmission Date: 20220423
  Serious: Yes (Other)
  Sender: FDA-Public Use
  Company Number: BR-SA-SAC20211202001184

PATIENT
  Age: 51 Year
  Sex: Female
  Weight: 71 kg

DRUGS (10)
  1. LANTUS [Suspect]
     Active Substance: INSULIN GLARGINE
     Indication: Type 1 diabetes mellitus
     Dosage: 32 IU, QD
     Route: 058
     Dates: start: 2001
  2. APIDRA [Suspect]
     Active Substance: INSULIN GLULISINE
     Indication: Type 1 diabetes mellitus
     Dosage: UNK (DOSE USED AFTER EACH MEAL)
     Route: 058
     Dates: start: 2001
  3. ATENOLOL [Suspect]
     Active Substance: ATENOLOL
     Indication: Renal disorder
     Dosage: 25 MG, QD
     Route: 048
  4. PURAN [Concomitant]
     Active Substance: LEVOTHYROXINE SODIUM
     Indication: Thyroid disorder
     Dosage: ONE TABLET IN THE MORNING
     Route: 048
  5. ROSUVASTATIN CALCIUM [Concomitant]
     Active Substance: ROSUVASTATIN CALCIUM
     Indication: Blood triglycerides
     Dosage: 10 MG, QD (TABLET AT NIGHT)
     Route: 048
  6. COSOPT [Concomitant]
     Active Substance: DORZOLAMIDE HYDROCHLORIDE\TIMOLOL MALEATE
     Indication: Blindness
     Dosage: 1 DROP, BID (ONE DROP IN THE MORNING AND ONE DROP IN THE EVENING)
     Route: 065
  7. LUMIGAN [Concomitant]
     Active Substance: BIMATOPROST
     Indication: Blindness
     Dosage: 1 DROP, QD (DROP AT NIGHT)
     Route: 065
  8. ACULAR [Concomitant]
     Active Substance: KETOROLAC TROMETHAMINE
     Indication: Blindness
     Dosage: 1 DROP, BID (ONE DROP IN THE MORNING AND ONE DROP AT NIGHT)
     Route: 065
  9. ACULAR [Concomitant]
     Active Substance: KETOROLAC TROMETHAMINE
     Indication: Haemorrhage
  10. LOSARTAN [Concomitant]
     Active Substance: LOSARTAN
     Indication: Renal disorder
     Dosage: 50 MG, Q12H
     Route: 048

REACTIONS (13)
  - Loss of consciousness [Unknown]
  - Mental impairment [Unknown]
  - Nephrolithiasis [Unknown]
  - Memory impairment [Unknown]
  - Illness [Unknown]
  - Feeling abnormal [Unknown]
  - Blood pressure increased [Unknown]
  - Blood glucose decreased [Unknown]
  - Blood glucose abnormal [Unknown]
  - Dawn phenomenon [Unknown]
  - Multiple use of single-use product [Unknown]
  - Product storage error [Unknown]
  - Off label use [Unknown]

NARRATIVE: CASE EVENT DATE: 20211128
